FAERS Safety Report 7023584-6 (Version None)
Quarter: 2010Q3

REPORT INFORMATION
  Report Type: 
  Country: None (occurrence: None)
  Receive Date: 20100930
  Receipt Date: 20100930
  Transmission Date: 20110219
  Serious: Yes (Other)
  Sender: FDA-Public Use
  Company Number: None

PATIENT
  Age: 47 Year
  Sex: Female
  Weight: 56.6996 kg

DRUGS (1)
  1. SINGULAIR [Suspect]
     Indication: SEASONAL ALLERGY
     Dosage: 10 MG. 1X/DAY ORAL
     Route: 048
     Dates: start: 20100909, end: 20100915

REACTIONS (2)
  - DISEASE RECURRENCE [None]
  - HERPES SIMPLEX [None]
